FAERS Safety Report 4792468-6 (Version None)
Quarter: 2005Q4

REPORT INFORMATION
  Report Type: 
  Country: None (occurrence: None)
  Receive Date: 20051010
  Receipt Date: 20050926
  Transmission Date: 20060501
  Serious: Yes (Hospitalization)
  Sender: FDA-Public Use
  Company Number: FR-GLAXOSMITHKLINE-B0394976A

PATIENT
  Age: 78 Year
  Sex: Male
  Weight: 58 kg

DRUGS (4)
  1. DEROXAT [Suspect]
     Dosage: 20MG PER DAY
     Route: 048
     Dates: start: 20050215, end: 20050804
  2. RISPERDAL [Suspect]
     Dosage: .5MG AT NIGHT
     Route: 048
     Dates: start: 20050730
  3. CARTEOL [Concomitant]
  4. SPAGULAX [Concomitant]

REACTIONS (6)
  - BLOOD OSMOLARITY DECREASED [None]
  - HEART RATE DECREASED [None]
  - HYPERKALAEMIA [None]
  - HYPONATRAEMIA [None]
  - MALAISE [None]
  - SUICIDE ATTEMPT [None]
